FAERS Safety Report 6130584-7 (Version None)
Quarter: 2009Q1

REPORT INFORMATION
  Report Type: 
  Country: None (occurrence: None)
  Receive Date: 20090325
  Receipt Date: 20090316
  Transmission Date: 20090719
  Serious: Yes (Death)
  Sender: FDA-Public Use
  Company Number: GB-RANBAXY-2009RR-22804

PATIENT
  Sex: Female

DRUGS (2)
  1. METFORMIN [Suspect]
     Route: 048
  2. SOLIAN [Suspect]
     Dosage: 500 MG, BID
     Route: 048

REACTIONS (2)
  - ANTIPSYCHOTIC DRUG LEVEL INCREASED [None]
  - SUDDEN DEATH [None]
